FAERS Safety Report 12488360 (Version 1)
Quarter: 2016Q2

REPORT INFORMATION
  Report Type: Spontaneous
  Country: GB (occurrence: GB)
  Receive Date: 20160622
  Receipt Date: 20160622
  Transmission Date: 20160815
  Serious: Yes (Hospitalization)
  Sender: FDA-Public Use
  Company Number: GB-TEVA-668531ACC

PATIENT
  Sex: Male

DRUGS (26)
  1. DOCUSATE [Concomitant]
     Active Substance: DOCUSATE
  2. OXYTETRACYCLINE [Concomitant]
     Active Substance: OXYTETRACYCLINE
  3. SALBUTAMOL [Concomitant]
     Active Substance: ALBUTEROL
  4. SALIVIX [Concomitant]
  5. SOLIFENACIN [Concomitant]
     Active Substance: SOLIFENACIN
  6. ATORVASTATIN [Concomitant]
     Active Substance: ATORVASTATIN
  7. CARBOCISTEINE [Concomitant]
     Active Substance: CARBOCYSTEINE
  8. HYDROXYCHLOROQUINE [Concomitant]
     Active Substance: HYDROXYCHLOROQUINE
  9. METHOTREXATE [Concomitant]
     Active Substance: METHOTREXATE
  10. SULFASALAZINE. [Concomitant]
     Active Substance: SULFASALAZINE
  11. DILTIAZEM [Suspect]
     Active Substance: DILTIAZEM
     Dosage: 240 MILLIGRAM DAILY; 240 MG DAILY, MODIFIED RELEASE
     Route: 048
  12. LANSOPRAZOLE. [Concomitant]
     Active Substance: LANSOPRAZOLE
  13. SENNA [Concomitant]
     Active Substance: SENNA LEAF\SENNOSIDES\SENNOSIDES A AND B
  14. TIOTROPIUM [Concomitant]
     Active Substance: TIOTROPIUM
  15. GTN [Concomitant]
     Active Substance: NITROGLYCERIN
  16. PARACETAMOL [Concomitant]
     Active Substance: ACETAMINOPHEN
  17. QUININE [Concomitant]
     Active Substance: QUININE
  18. ADCAL-D3 [Concomitant]
     Active Substance: CALCIUM CARBONATE\CHOLECALCIFEROL
  19. ASPIRIN. [Concomitant]
     Active Substance: ASPIRIN
  20. ETANERCEPT [Concomitant]
     Active Substance: ETANERCEPT
  21. FERROUS SULFATE. [Concomitant]
     Active Substance: FERROUS SULFATE
  22. FOLIC ACID. [Concomitant]
     Active Substance: FOLIC ACID
  23. METFORMIN [Concomitant]
     Active Substance: METFORMIN HYDROCHLORIDE
  24. SERETIDE [Concomitant]
     Active Substance: FLUTICASONE PROPIONATE\SALMETEROL XINAFOATE
  25. TAMSULOSIN [Concomitant]
     Active Substance: TAMSULOSIN
  26. TRAMADOL. [Concomitant]
     Active Substance: TRAMADOL

REACTIONS (2)
  - Hypotension [Recovered/Resolved]
  - Fall [Unknown]
